FAERS Safety Report 5524346-9 (Version None)
Quarter: 2007Q4

REPORT INFORMATION
  Report Type: 
  Country: None (occurrence: None)
  Receive Date: 20071121
  Receipt Date: 20071112
  Transmission Date: 20080405
  Serious: Yes (Other)
  Sender: FDA-Public Use
  Company Number: SE-PFIZER INC-2007095788

PATIENT
  Age: 9 Year
  Sex: Male

DRUGS (12)
  1. METHYLPREDNISOLONE [Suspect]
     Indication: GRAFT VERSUS HOST DISEASE
  2. PREDNISONE TAB [Suspect]
     Indication: GRAFT VERSUS HOST DISEASE
  3. PREDNISOLONE [Suspect]
     Indication: GRAFT VERSUS HOST DISEASE
  4. CYCLOSPORINE [Suspect]
     Indication: GRAFT VERSUS HOST DISEASE
  5. SULFAMETHOXAZOLE AND TRIMETHOPRIM [Suspect]
     Indication: GRAFT VERSUS HOST DISEASE
  6. ALLOPURINOL [Suspect]
  7. METHOTREXATE [Suspect]
  8. ACYCLOVIR [Concomitant]
  9. FLUCONAZOLE [Concomitant]
  10. ACETAMINOPHEN [Concomitant]
  11. NIFEDIPINE [Concomitant]
  12. DEXCHLORPHENIRAMINE [Concomitant]

REACTIONS (2)
  - HAEMOLYTIC URAEMIC SYNDROME [None]
  - TOXIC EPIDERMAL NECROLYSIS [None]
